FAERS Safety Report 13853164 (Version 3)
Quarter: 2017Q4

REPORT INFORMATION
  Report Type: Spontaneous
  Country: US (occurrence: US)
  Receive Date: 20170810
  Receipt Date: 20171005
  Transmission Date: 20180320
  Serious: No
  Sender: FDA-Public Use
  Company Number: US-ASTRAZENECA-2017SE80692

PATIENT
  Age: 21320 Day
  Sex: Female
  Weight: 118.8 kg

DRUGS (1)
  1. BYDUREON [Suspect]
     Active Substance: EXENATIDE
     Indication: GLYCOSYLATED HAEMOGLOBIN INCREASED
     Route: 058
     Dates: start: 20170702, end: 201707

REACTIONS (5)
  - Product solubility abnormal [Unknown]
  - Injection site injury [Unknown]
  - Injection site pain [Unknown]
  - Injection site bruising [Unknown]
  - Wrong technique in product usage process [Unknown]

NARRATIVE: CASE EVENT DATE: 20170702
